FAERS Safety Report 16141022 (Version 1)
Quarter: 2019Q2

REPORT INFORMATION
  Report Type: Report from Study
  Country: CA (occurrence: CA)
  Receive Date: 20190401
  Receipt Date: 20190401
  Transmission Date: 20190711
  Serious: Yes (Hospitalization)
  Sender: FDA-Public Use
  Company Number: CA-HLSUS-2019-CA-000176

PATIENT
  Age: 68 Year
  Sex: Male
  Weight: 97 kg

DRUGS (14)
  1. APO VALPROIC [Concomitant]
     Dosage: 250 CAPSULE, 1 CAPSULE- MORNING AND SUPPER, 2 CAPS AT BEDTIME
  2. ASAPHEN [Concomitant]
     Active Substance: ASPIRIN
     Dosage: 80 MG, 1 TABLET DAILY AT BREAKFAST
  3. APO ISMN [Concomitant]
     Dosage: 60 MG, 1 TABLET DAILY WITH BREAKFAST
  4. TEVA METOPROLOL [Concomitant]
     Dosage: 50 MG, 1 TABLET TWICE A DAY AT BREAKFAST AND AT BEDTIME
  5. SYNTHROID [Concomitant]
     Active Substance: LEVOTHYROXINE SODIUM
     Dosage: 125 MCG HALF TABLET DAILY WITH BREAKFAST
  6. PMS DOCUSATE SODIUM [Concomitant]
     Dosage: 100 MG, 2 CAPSULES TWICE A DAY, MORNING AND BEDTIME
  7. APO RAMIPRIL [Concomitant]
     Active Substance: RAMIPRIL
     Dosage: 5 MG, 1 TABLET DAILY AT BREAKFAST
  8. JAMP SENNOSIDES [Concomitant]
     Dosage: 8.6 MG, 2 TABLETS TWICE A DAY - MORNING AND AT BED TIME
  9. SANDOZ ATORVASTATINE [Concomitant]
     Dosage: 80 MG, 1 TABLET DAILY AT BED TIME
  10. MYLAN NITRO SL SPRAY [Concomitant]
     Dosage: 0.4 MG, VAPORIZE UNDER THE TONGUE IF ANGINAL PAIN, REPEAT EVERY 5 MINS
  11. CLOZARIL [Suspect]
     Active Substance: CLOZAPINE
     Dosage: 2 TABLETS 3 TIMES A DAY
     Route: 048
     Dates: start: 19970511
  12. DEXILANT [Concomitant]
     Active Substance: DEXLANSOPRAZOLE
     Dosage: 60 MG, 1 TABLET DAILY WITH BREAKFAST
  13. SANDOZ ALFUZOSIN [Concomitant]
     Dosage: 10 MG 1 TABLET AT SUPPER
  14. RATIO DOMPERIDONE [Concomitant]
     Dosage: 10 MG, 1 TABLET TWICE A DAY, MORNING AND AT BED TIME

REACTIONS (6)
  - Pneumonia [Unknown]
  - Cough [Unknown]
  - Fall [Unknown]
  - Pyrexia [Unknown]
  - Malaise [Unknown]
  - Accidental exposure to product [Unknown]

NARRATIVE: CASE EVENT DATE: 201901
